FAERS Safety Report 9675340 (Version 3)
Quarter: 2013Q4

REPORT INFORMATION
  Report Type: Spontaneous
  Country: US (occurrence: US)
  Receive Date: 20131107
  Receipt Date: 20131225
  Transmission Date: 20140711
  Serious: No
  Sender: FDA-Public Use
  Company Number: US-009507513-1311USA001737

PATIENT
  Age: 74 Year
  Sex: Male
  Weight: 96.15 kg

DRUGS (1)
  1. ASMANEX TWISTHALER [Suspect]
     Indication: LUNG DISORDER
     Dosage: TWO PUFFS ONCE A DAY
     Route: 055
     Dates: start: 201306

REACTIONS (3)
  - Dyspnoea [Not Recovered/Not Resolved]
  - Drug dose omission [Unknown]
  - Product quality issue [Unknown]
